FAERS Safety Report 7421801-1 (Version None)
Quarter: 2011Q2

REPORT INFORMATION
  Report Type: 
  Country: None (occurrence: None)
  Receive Date: 20110407
  Receipt Date: 20110328
  Transmission Date: 20111010
  Serious: Yes (Death, Hospitalization)
  Sender: FDA-Public Use
  Company Number: UTC-005813

PATIENT
  Age: 74 Year
  Sex: Female
  Weight: 68.18 kg

DRUGS (3)
  1. TRACLEER [Concomitant]
  2. REMODULIN [Suspect]
     Indication: PULMONARY ARTERIAL HYPERTENSION
     Dosage: (0.008 UG/KG),SUBCUTANEOUS
     Route: 058
     Dates: start: 20110113
  3. ADCIRCA [Concomitant]

REACTIONS (6)
  - BLOOD GLUCOSE DECREASED [None]
  - INJECTION SITE ABSCESS [None]
  - FALL [None]
  - CULTURE WOUND POSITIVE [None]
  - HEAD INJURY [None]
  - ANTIBIOTIC RESISTANT STAPHYLOCOCCUS TEST POSITIVE [None]
